FAERS Safety Report 5741302-6 (Version None)
Quarter: 2008Q2

REPORT INFORMATION
  Report Type: 
  Country: None (occurrence: None)
  Receive Date: 20080515
  Receipt Date: 20080428
  Transmission Date: 20081010
  Serious: Yes (Other)
  Sender: FDA-Public Use
  Company Number: IMP_03640_2008

PATIENT
  Age: 21 Year
  Sex: Female

DRUGS (1)
  1. CLARITIN-D [Suspect]
     Indication: DRUG USE FOR UNKNOWN INDICATION
     Dosage: (10 DF 1X

REACTIONS (1)
  - INCORRECT DOSE ADMINISTERED [None]
